FAERS Safety Report 5839197-5 (Version None)
Quarter: 2008Q3

REPORT INFORMATION
  Report Type: 
  Country: None (occurrence: None)
  Receive Date: 20080808
  Receipt Date: 20080801
  Transmission Date: 20090109
  Serious: Yes (Hospitalization)
  Sender: FDA-Public Use
  Company Number: GB-MERCK-0808GBR00011

PATIENT
  Age: 75 Year
  Sex: Female

DRUGS (12)
  1. FOSAMAX [Suspect]
     Indication: OSTEOPOROSIS PROPHYLAXIS
     Route: 048
     Dates: start: 20080613, end: 20080709
  2. ASPIRIN [Concomitant]
     Route: 048
  3. CALCIUM CARBONATE AND CHOLECALCIFEROL [Concomitant]
     Route: 065
  4. CARBOCYSTEINE [Concomitant]
     Route: 048
  5. DILTIAZEM HYDROCHLORIDE [Concomitant]
     Route: 065
  6. FUROSEMIDE [Concomitant]
     Route: 048
  7. IPRATROPIUM BROMIDE [Concomitant]
     Route: 065
  8. AMINOPHYLLINE [Concomitant]
     Route: 065
  9. PROCHLORPERAZINE [Concomitant]
  10. ALBUTEROL [Concomitant]
     Route: 065
  11. FLUTICASONE PROPIONATE AND SALMETEROL XINAFOATE [Concomitant]
     Route: 065
  12. SIMVASTATIN [Concomitant]
     Route: 065

REACTIONS (4)
  - ACUTE CORONARY SYNDROME [None]
  - HYPOCALCAEMIA [None]
  - NAUSEA [None]
  - VOMITING [None]
